FAERS Safety Report 10286126 (Version 1)
Quarter: 2014Q3

REPORT INFORMATION
  Report Type: Spontaneous
  Country: US (occurrence: None)
  Receive Date: 20140707
  Receipt Date: 20140707
  Transmission Date: 20150326
  Serious: No
  Sender: FDA-Public Use
  Company Number: None

PATIENT
  Age: 11 Year
  Sex: Male
  Weight: 93.3 kg

DRUGS (6)
  1. CYTARABINE. [Suspect]
     Active Substance: CYTARABINE
     Dates: end: 20131210
  2. DEXAMETHASONE. [Suspect]
     Active Substance: DEXAMETHASONE
     Dates: end: 20140102
  3. VINCRISTINE SULFATE. [Suspect]
     Active Substance: VINCRISTINE SULFATE
     Dates: end: 20131226
  4. DAUNORUBICIN [Suspect]
     Active Substance: DAUNORUBICIN
     Dates: end: 20131226
  5. PREDNISONE. [Suspect]
     Active Substance: PREDNISONE
     Dates: end: 20131231
  6. ONCASPAR [Suspect]
     Active Substance: PEGASPARGASE
     Dosage: 5250 UNIT
     Dates: end: 20131214

REACTIONS (22)
  - Cerebrovascular accident [None]
  - Cerebral infarction [None]
  - Hypotension [None]
  - Cerebral ischaemia [None]
  - Immunosuppression [None]
  - Haemoptysis [None]
  - Gait disturbance [None]
  - Mental status changes [None]
  - Cough [None]
  - Asthenia [None]
  - Neutropenia [None]
  - Pyrexia [None]
  - Disseminated intravascular coagulation [None]
  - Infarction [None]
  - Bradycardia [None]
  - Intracranial venous sinus thrombosis [None]
  - Streptococcus test positive [None]
  - Zygomycosis [None]
  - Dehydration [None]
  - Haemorrhage [None]
  - Atrial thrombosis [None]
  - Blindness transient [None]

NARRATIVE: CASE EVENT DATE: 20140102
